FAERS Safety Report 10200146 (Version 2)
Quarter: 2014Q2

REPORT INFORMATION
  Report Type: Report from Study
  Country: CH (occurrence: CH)
  Receive Date: 20140527
  Receipt Date: 20140604
  Transmission Date: 20141212
  Serious: Yes (Death, Life-Threatening)
  Sender: FDA-Public Use
  Company Number: CH-TEVA-484335USA

PATIENT
  Age: 80 Year
  Sex: Female

DRUGS (7)
  1. BENDAMUSTINE [Suspect]
     Indication: B-CELL LYMPHOMA
     Dosage: UNK, UNKNOWN FREQ.
     Route: 065
     Dates: start: 20131230, end: 20140325
  2. RITUXIMAB [Suspect]
     Indication: B-CELL LYMPHOMA
     Dosage: UNK UNK, UNKNOWN FREQ.
     Route: 065
     Dates: start: 20131230, end: 20140324
  3. LENALIDOMIDE [Suspect]
     Indication: B-CELL LYMPHOMA
     Dosage: UNK, UNKNOWN FREQ.
     Route: 065
     Dates: start: 20131230, end: 2014
  4. LENALIDOMIDE [Suspect]
     Route: 048
     Dates: start: 20140218, end: 20140302
  5. AMIODARONE [Concomitant]
     Indication: PRODUCT USED FOR UNKNOWN INDICATION
     Route: 048
  6. ATORVASTATIN [Concomitant]
     Indication: PRODUCT USED FOR UNKNOWN INDICATION
     Route: 048
  7. PREGABALIN [Concomitant]
     Indication: PRODUCT USED FOR UNKNOWN INDICATION
     Route: 048

REACTIONS (1)
  - Haemorrhage intracranial [Fatal]
